FAERS Safety Report 8082410-7 (Version None)
Quarter: 2012Q1

REPORT INFORMATION
  Report Type: 
  Country: None (occurrence: None)
  Receive Date: 20120127
  Receipt Date: 20110223
  Transmission Date: 20120608
  Serious: No
  Sender: FDA-Public Use
  Company Number: US-ABBOTT-11P-163-0706192-00

PATIENT
  Age: 28 Year
  Sex: Female

DRUGS (7)
  1. HUMIRA [Suspect]
     Indication: CROHN'S DISEASE
     Dates: start: 20100915
  2. FLINTSTONES MULTI-VITAMIN [Concomitant]
     Indication: PRODUCT USED FOR UNKNOWN INDICATION
     Route: 048
  3. ALBUTEROL [Concomitant]
  4. MUCINEX [Concomitant]
     Indication: PRODUCT USED FOR UNKNOWN INDICATION
     Dosage: ONCE DAILY AS REQUIRED
  5. ACETAMINOPHEN [Concomitant]
     Indication: PYREXIA
  6. ACETAMINOPHEN [Concomitant]
     Indication: HEADACHE
  7. ALBUTEROL [Concomitant]
     Indication: DYSPNOEA
     Dates: start: 20101101

REACTIONS (5)
  - RESPIRATORY TRACT CONGESTION [None]
  - PYREXIA [None]
  - OROPHARYNGEAL PAIN [None]
  - RESPIRATORY TRACT INFECTION [None]
  - SINUS CONGESTION [None]
